FAERS Safety Report 19973131 (Version 1)
Quarter: 2021Q4

REPORT INFORMATION
  Report Type: Spontaneous
  Country: US (occurrence: US)
  Receive Date: 20211019
  Receipt Date: 20211019
  Transmission Date: 20220304
  Serious: Yes (Hospitalization)
  Sender: FDA-Public Use
  Company Number: None

PATIENT
  Age: 60 Year
  Sex: Female

DRUGS (9)
  1. STELARA [Suspect]
     Active Substance: USTEKINUMAB
     Indication: Psoriasis
     Dosage: ?          OTHER FREQUENCY:EVERY 12 WEEKS;
     Route: 058
  2. CIPROFLOXACIN [Concomitant]
     Active Substance: CIPROFLOXACIN
  3. GABAPENTIN [Concomitant]
     Active Substance: GABAPENTIN
  4. ATORVASTATIN CALCIUM [Concomitant]
     Active Substance: ATORVASTATIN CALCIUM
  5. LOSARTAN POTASSIUM [Concomitant]
     Active Substance: LOSARTAN POTASSIUM
  6. NITROFURANTOIN [Concomitant]
     Active Substance: NITROFURANTOIN
  7. DEXILANT [Concomitant]
     Active Substance: DEXLANSOPRAZOLE
  8. FARXIGA [Concomitant]
     Active Substance: DAPAGLIFLOZIN PROPANEDIOL
  9. DICYCLOMINE HYDROCHLORIDE [Suspect]
     Active Substance: DICYCLOMINE HYDROCHLORIDE

REACTIONS (2)
  - Sepsis [None]
  - Urinary tract infection [None]

NARRATIVE: CASE EVENT DATE: 20211009
